FAERS Safety Report 8318534-6 (Version None)
Quarter: 2012Q2

REPORT INFORMATION
  Report Type: 
  Country: None (occurrence: None)
  Receive Date: 20120427
  Receipt Date: 20120422
  Transmission Date: 20120825
  Serious: Yes (Hospitalization, Other)
  Sender: FDA-Public Use
  Company Number: BR-GLAXOSMITHKLINE-B0798396A

PATIENT
  Sex: Female

DRUGS (5)
  1. CARVEDILOL [Concomitant]
     Dosage: 6.25MG PER DAY
     Route: 048
  2. PROPAFENONE HCL [Suspect]
     Indication: HEART RATE INCREASED
     Dates: start: 20090101
  3. PANTOPRAZOLE SODIUM SESQUIHYDRATE [Concomitant]
     Indication: GASTRITIS
     Dosage: 20MG TWICE PER DAY
     Route: 048
     Dates: start: 20100101
  4. UNKNOWN DRUG [Concomitant]
     Indication: MENSTRUAL DISORDER
  5. WARFARIN SODIUM [Concomitant]
     Indication: ANTICOAGULANT THERAPY
     Dosage: 7.5MG PER DAY

REACTIONS (8)
  - CARDIAC VALVE DISEASE [None]
  - DISABILITY [None]
  - RHEUMATIC FEVER [None]
  - MOBILITY DECREASED [None]
  - HAEMORRHAGIC DIATHESIS [None]
  - DYSPNOEA [None]
  - ACTIVITIES OF DAILY LIVING IMPAIRED [None]
  - COAGULOPATHY [None]
